FAERS Safety Report 23540835 (Version 1)
Quarter: 2024Q1

REPORT INFORMATION
  Report Type: Spontaneous
  Country: FR (occurrence: FR)
  Receive Date: 20240219
  Receipt Date: 20240219
  Transmission Date: 20240410
  Serious: Yes (Life-Threatening)
  Sender: FDA-Public Use
  Company Number: None

PATIENT
  Age: 73 Year
  Sex: Female

DRUGS (5)
  1. PACLITAXEL [Suspect]
     Active Substance: PACLITAXEL
     Indication: Ovarian epithelial cancer
     Dosage: - IN 2007, FIRST-LINE TREATMENT WITH CARBOPLATINE TAXOL, FOLLOWED BY SURGERY AND THREE CYCLES OF ADJ
     Route: 051
     Dates: start: 2007, end: 2010
  2. CARBOPLATIN [Suspect]
     Active Substance: CARBOPLATIN
     Indication: Ovarian epithelial cancer
     Dosage: - IN 2007, FIRST-LINE TREATMENT WITH CARBOPLATINE TAXOL, FOLLOWED BY SURGERY AND THREE CYCLES OF ADJ
     Route: 051
     Dates: start: 2007, end: 2019
  3. GEMCITABINE [Suspect]
     Active Substance: GEMCITABINE
     Indication: Ovarian epithelial cancer
     Dosage: - IN 2007, FIRST-LINE TREATMENT WITH CARBOPLATINE TAXOL, FOLLOWED BY SURGERY AND THREE CYCLES OF ADJ
     Route: 051
     Dates: start: 2016, end: 2016
  4. DOXORUBICIN HYDROCHLORIDE [Suspect]
     Active Substance: DOXORUBICIN HYDROCHLORIDE
     Indication: Ovarian epithelial cancer
     Dosage: - IN 2007, FIRST-LINE TREATMENT WITH CARBOPLATINE TAXOL, FOLLOWED BY SURGERY AND THREE CYCLES OF ADJ
     Route: 051
     Dates: start: 2015, end: 2019
  5. NIRAPARIB TOSYLATE MONOHYDRATE [Suspect]
     Active Substance: NIRAPARIB TOSYLATE MONOHYDRATE
     Indication: Ovarian epithelial cancer
     Route: 048
     Dates: start: 20191031, end: 20231222

REACTIONS (1)
  - Acute myeloid leukaemia [Not Recovered/Not Resolved]

NARRATIVE: CASE EVENT DATE: 20231222
